FAERS Safety Report 18383568 (Version 3)
Quarter: 2022Q1

REPORT INFORMATION
  Report Type: Other
  Country: JP (occurrence: JP)
  Receive Date: 20201014
  Receipt Date: 20220215
  Transmission Date: 20220423
  Serious: Yes (Other)
  Sender: FDA-Public Use
  Company Number: JP-CHUGAI-A2020044638ROCHE

PATIENT
  Age: 68 Year
  Sex: Female
  Weight: 56.4 kg

DRUGS (1)
  1. ENTRECTINIB [Suspect]
     Active Substance: ENTRECTINIB
     Indication: Non-small cell lung cancer
     Dosage: MOST RECENT DOSE ON 05/OCT/2020
     Route: 048
     Dates: start: 20200915

REACTIONS (5)
  - Renal impairment [Recovered/Resolved]
  - Fall [Unknown]
  - Patella fracture [Recovering/Resolving]
  - Ataxia [Recovered/Resolved]
  - Taste disorder [Recovered/Resolved]

NARRATIVE: CASE EVENT DATE: 20200923
